FAERS Safety Report 4368435-3 (Version None)
Quarter: 2004Q2

REPORT INFORMATION
  Report Type: 
  Country: None (occurrence: None)
  Receive Date: 20040602
  Receipt Date: 20040109
  Transmission Date: 20050107
  Serious: No
  Sender: FDA-Public Use
  Company Number: US-GLAXOSMITHKLINE-A0492256A

PATIENT
  Age: 68 Year
  Sex: Female

DRUGS (3)
  1. AUGMENTIN [Suspect]
     Indication: ILL-DEFINED DISORDER
     Dosage: 250MG TWICE PER DAY
     Route: 048
  2. CEFTIN [Suspect]
     Indication: ILL-DEFINED DISORDER
     Dosage: 250MG TWICE PER DAY
     Route: 048
  3. BENADRYL [Concomitant]

REACTIONS (4)
  - ANXIETY [None]
  - MEDICATION ERROR [None]
  - PRURITUS [None]
  - TREMOR [None]
